FAERS Safety Report 4420713-5 (Version None)
Quarter: 2004Q3

REPORT INFORMATION
  Report Type: 
  Country: None (occurrence: None)
  Receive Date: 20040809
  Receipt Date: 20040504
  Transmission Date: 20050211
  Serious: No
  Sender: FDA-Public Use
  Company Number: US-GLAXOSMITHKLINE-A0509445A

PATIENT
  Sex: Male

DRUGS (3)
  1. PAXIL [Suspect]
     Dosage: 20MG PER DAY
     Route: 048
     Dates: start: 20040111
  2. ASPIRIN [Concomitant]
  3. M.V.I. [Concomitant]

REACTIONS (2)
  - ALOPECIA [None]
  - LIBIDO DECREASED [None]
